FAERS Safety Report 4507899-9 (Version None)
Quarter: 2004Q4

REPORT INFORMATION
  Report Type: 
  Country: None (occurrence: None)
  Receive Date: 20041123
  Receipt Date: 20040826
  Transmission Date: 20050328
  Serious: Yes (Hospitalization)
  Sender: FDA-Public Use
  Company Number: US-ROCHE-379042

PATIENT
  Age: 56 Year
  Sex: Male

DRUGS (4)
  1. DEMADEX [Suspect]
     Indication: DRUG USE FOR UNKNOWN INDICATION
     Route: 048
     Dates: start: 20040615
  2. DEMADEX [Suspect]
     Route: 048
     Dates: end: 20040415
  3. DEMADEX [Suspect]
     Dosage: DOSE LOWERED.
     Route: 048
  4. TORSEMIDE [Suspect]
     Route: 048
     Dates: start: 20040415, end: 20040615

REACTIONS (6)
  - CARDIAC FAILURE CONGESTIVE [None]
  - DEHYDRATION [None]
  - DRUG INEFFECTIVE [None]
  - FLUID RETENTION [None]
  - HYPOKALAEMIA [None]
  - PHARMACEUTICAL PRODUCT COMPLAINT [None]
